FAERS Safety Report 11646179 (Version 2)
Quarter: 2016Q2

REPORT INFORMATION
  Report Type: Spontaneous
  Country: US (occurrence: US)
  Receive Date: 20151020
  Receipt Date: 20160429
  Transmission Date: 20160815
  Serious: No
  Sender: FDA-Public Use
  Company Number: US-ROCHE-1609458

PATIENT
  Sex: Male
  Weight: 93.52 kg

DRUGS (3)
  1. OMEPRAZOLE. [Concomitant]
     Active Substance: OMEPRAZOLE
     Indication: ABDOMINAL DISCOMFORT
  2. ESBRIET [Suspect]
     Active Substance: PIRFENIDONE
     Indication: IDIOPATHIC PULMONARY FIBROSIS
     Dosage: 9 CAPSULES PER DAY (3 CAPSULES 3 TIMES DAILY)
     Route: 048
     Dates: start: 20150909
  3. ESBRIET [Suspect]
     Active Substance: PIRFENIDONE
     Dosage: 9 CAPSULES PER DAY (3 CAPSULES 3 TIMES DAILY)
     Route: 048

REACTIONS (5)
  - Skin exfoliation [Unknown]
  - Abdominal discomfort [Unknown]
  - Rash [Unknown]
  - Haematuria [Unknown]
  - Blister [Unknown]
